FAERS Safety Report 25133879 (Version 2)
Quarter: 2025Q3

REPORT INFORMATION
  Report Type: Spontaneous
  Country: US (occurrence: US)
  Receive Date: 20250328
  Receipt Date: 20250816
  Transmission Date: 20251021
  Serious: No
  Sender: ALEXION PHARMACEUTICALS
  Company Number: US-AstraZeneca-CH-00833342A

PATIENT
  Sex: Female

DRUGS (1)
  1. FARXIGA [Suspect]
     Active Substance: DAPAGLIFLOZIN PROPANEDIOL
     Route: 065

REACTIONS (5)
  - Skin ulcer [Unknown]
  - Genital ulceration [Unknown]
  - Genital infection [Unknown]
  - Skin infection [Not Recovered/Not Resolved]
  - Scar pain [Not Recovered/Not Resolved]
